FAERS Safety Report 20650090 (Version 1)
Quarter: 2022Q1

REPORT INFORMATION
  Report Type: Spontaneous
  Country: US (occurrence: US)
  Receive Date: 20220329
  Receipt Date: 20220329
  Transmission Date: 20220424
  Serious: No
  Sender: FDA-Public Use
  Company Number: US-ELI_LILLY_AND_COMPANY-US202203012368

PATIENT
  Age: 54 Year
  Sex: Female

DRUGS (2)
  1. EMGALITY [Suspect]
     Active Substance: GALCANEZUMAB-GNLM
     Indication: Product used for unknown indication
     Dosage: UNK UNK, UNKNOWN
     Route: 065
  2. EMGALITY [Suspect]
     Active Substance: GALCANEZUMAB-GNLM
     Dosage: UNK UNK, UNKNOWN
     Route: 065

REACTIONS (6)
  - Night sweats [Unknown]
  - Chills [Unknown]
  - Nervous system disorder [Unknown]
  - Dysphagia [Unknown]
  - Pruritus [Unknown]
  - Swelling face [Unknown]

NARRATIVE: CASE EVENT DATE: 20220101
